FAERS Safety Report 4380183-2 (Version None)
Quarter: 2004Q2

REPORT INFORMATION
  Report Type: 
  Country: None (occurrence: None)
  Receive Date: 20040601
  Receipt Date: 20040219
  Transmission Date: 20050107
  Serious: No
  Sender: FDA-Public Use
  Company Number: WAES 0302USA00611

PATIENT
  Sex: Female

DRUGS (12)
  1. ZETIA [Suspect]
     Indication: BLOOD CHOLESTEROL INCREASED
     Dosage: 10 MG/DAILY/PO
     Route: 048
  2. AMBIEN [Concomitant]
  3. ATIVAN [Concomitant]
  4. AVAPRO [Concomitant]
  5. DARVOCET-N 100 [Concomitant]
  6. LODINE [Concomitant]
  7. OXYCONTIN [Concomitant]
  8. SYNTHROID [Concomitant]
  9. VALIUM [Concomitant]
  10. VICODIN [Concomitant]
  11. VOLTAREN [Concomitant]
  12. ATENOLOL [Concomitant]

REACTIONS (2)
  - ARTHRALGIA [None]
  - MYALGIA [None]
